FAERS Safety Report 5187814-8 (Version None)
Quarter: 2006Q4

REPORT INFORMATION
  Report Type: 
  Country: None (occurrence: None)
  Receive Date: 20061221
  Receipt Date: 20061213
  Transmission Date: 20070319
  Serious: Yes (Life-Threatening, Hospitalization)
  Sender: FDA-Public Use
  Company Number: ZA-JNJFOC-20061203755

PATIENT
  Age: 47 Year
  Sex: Male
  Weight: 80 kg

DRUGS (4)
  1. REVELLEX [Suspect]
     Indication: COLITIS ULCERATIVE
     Dosage: 3 DOSES
     Route: 042
  2. ASACOL [Concomitant]
     Route: 065
  3. METICORTEN [Concomitant]
     Dosage: TAKEN FOR AROUND 2 YEARS AND STOPPED RIOR TO INFLIXIMAB
     Route: 065
  4. AZAPRESS [Concomitant]
     Dosage: TAKEN FOR 2 YEARS AND STOPPED PRIOR TO INFLIXIMAB.
     Route: 065

REACTIONS (4)
  - HEPATOSPLENOMEGALY [None]
  - LUPUS-LIKE SYNDROME [None]
  - PNEUMOCYSTIS JIROVECI PNEUMONIA [None]
  - PULMONARY TUBERCULOSIS [None]
